FAERS Safety Report 4890950-4 (Version None)
Quarter: 2006Q1

REPORT INFORMATION
  Report Type: 
  Country: None (occurrence: None)
  Receive Date: 20060123
  Receipt Date: 20060110
  Transmission Date: 20060701
  Serious: Yes (Hospitalization, Other)
  Sender: FDA-Public Use
  Company Number: 2005164446

PATIENT
  Age: 53 Year
  Sex: Female
  Weight: 64.4108 kg

DRUGS (8)
  1. LYRICA [Suspect]
     Indication: NEURALGIA
     Dosage: 75 (75 MG, 1IN 1 D), ORAL
     Route: 048
     Dates: start: 20051001, end: 20051031
  2. ZOLOFT [Suspect]
     Indication: ILL-DEFINED DISORDER
  3. EFFEXOR XR [Concomitant]
  4. NEURONTIN [Concomitant]
  5. KLONOPIN [Concomitant]
  6. BUSPAR [Concomitant]
  7. FLONASE [Concomitant]
  8. PROTONIX [Concomitant]

REACTIONS (15)
  - ABDOMINAL DISTENSION [None]
  - ABDOMINAL PAIN UPPER [None]
  - ARTHRITIS [None]
  - CHRONIC SINUSITIS [None]
  - DEPRESSION [None]
  - DRUG HYPERSENSITIVITY [None]
  - DRUG INEFFECTIVE [None]
  - GASTRIC CANCER [None]
  - GASTRIC ULCER [None]
  - HEART RATE INCREASED [None]
  - NAUSEA [None]
  - PAIN IN EXTREMITY [None]
  - PALPITATIONS [None]
  - VERTIGO [None]
  - VOMITING [None]
